FAERS Safety Report 22065755 (Version 1)
Quarter: 2023Q1

REPORT INFORMATION
  Report Type: Spontaneous
  Country: US (occurrence: US)
  Receive Date: 20230306
  Receipt Date: 20230306
  Transmission Date: 20230418
  Serious: No
  Sender: FDA-Public Use
  Company Number: US-PFIZER INC-202300093475

PATIENT
  Age: 88 Year
  Sex: Female
  Weight: 42.18 kg

DRUGS (2)
  1. ESTRADIOL CYPIONATE [Suspect]
     Active Substance: ESTRADIOL CYPIONATE
     Indication: Hormone replacement therapy
     Dosage: 5MG/ML 1ML ONCE A MONTH
  2. ALPRAZOLAM [Concomitant]
     Active Substance: ALPRAZOLAM
     Indication: Anxiety
     Dosage: 0.25 MG, 3X/DAY
     Route: 048

REACTIONS (4)
  - Headache [Not Recovered/Not Resolved]
  - Malaise [Unknown]
  - Nausea [Unknown]
  - Dizziness [Unknown]
